FAERS Safety Report 20830206 (Version 1)
Quarter: 2022Q2

REPORT INFORMATION
  Report Type: Report from Study
  Country: MX (occurrence: MX)
  Receive Date: 20220514
  Receipt Date: 20220514
  Transmission Date: 20220721
  Serious: Yes (Other)
  Sender: FDA-Public Use
  Company Number: MX-BRISTOL-MYERS SQUIBB COMPANY-2022-025652

PATIENT
  Age: 30 Year
  Sex: Female
  Weight: 67 kg

DRUGS (1)
  1. SPRYCEL [Suspect]
     Active Substance: DASATINIB
     Indication: Chronic myeloid leukaemia
     Dosage: FREQUENCY:DAILY
     Route: 048
     Dates: start: 20200121, end: 20211101

REACTIONS (1)
  - Bone marrow disorder [Recovering/Resolving]

NARRATIVE: CASE EVENT DATE: 20220318
